FAERS Safety Report 21620531 (Version 1)
Quarter: 2022Q4

REPORT INFORMATION
  Report Type: Spontaneous
  Country: US (occurrence: US)
  Receive Date: 20221121
  Receipt Date: 20221121
  Transmission Date: 20230113
  Serious: No
  Sender: FDA-Public Use
  Company Number: US-BRISTOL-MYERS SQUIBB COMPANY-2022-140878

PATIENT
  Age: 84 Year
  Sex: Female
  Weight: 65.6 kg

DRUGS (1)
  1. LENALIDOMIDE [Suspect]
     Active Substance: LENALIDOMIDE
     Indication: Plasma cell myeloma
     Dosage: FREQ: 21 DAYS ON AND 7 DAYS OFF, ONE A DAY
     Route: 048
     Dates: start: 20220907

REACTIONS (1)
  - Neutrophil count decreased [Recovered/Resolved]
